FAERS Safety Report 8845407 (Version 1)
Quarter: 2012Q4

REPORT INFORMATION
  Report Type: Spontaneous
  Country: US (occurrence: None)
  Receive Date: 20121015
  Receipt Date: 20121015
  Transmission Date: 20130627
  Serious: Yes (Hospitalization)
  Sender: FDA-Public Use
  Company Number: USA/USA/12/0026151

PATIENT
  Age: 44 Year
  Sex: Male

DRUGS (1)
  1. QUETIAPINE FUMARATE [Suspect]
     Indication: BIPOLAR I DISORDER

REACTIONS (4)
  - Akathisia [None]
  - Restless legs syndrome [None]
  - Drug ineffective [None]
  - Middle insomnia [None]
